FAERS Safety Report 5441746-6 (Version None)
Quarter: 2007Q3

REPORT INFORMATION
  Report Type: 
  Country: None (occurrence: None)
  Receive Date: 20070829
  Receipt Date: 20070829
  Transmission Date: 20080115
  Serious: Yes (Death, Hospitalization)
  Sender: FDA-Public Use
  Company Number: None

PATIENT
  Age: 54 Year
  Sex: Male
  Weight: 79.8331 kg

DRUGS (8)
  1. TAXOTERE [Suspect]
     Indication: SQUAMOUS CELL CARCINOMA
     Dosage: 152MG(75MG/M2);Q 3WK; IV
     Route: 042
     Dates: start: 20070814, end: 20070814
  2. ATENOLOL [Concomitant]
  3. DIOVAN [Concomitant]
  4. LACTULOSE [Concomitant]
  5. LORAZEPAM [Concomitant]
  6. OMEPRAZOLE [Concomitant]
  7. PERCOCET [Concomitant]
  8. ZOFRAN [Concomitant]

REACTIONS (20)
  - ABDOMINAL PAIN [None]
  - ACIDOSIS [None]
  - ADRENAL HAEMORRHAGE [None]
  - ALANINE AMINOTRANSFERASE INCREASED [None]
  - APNOEA [None]
  - ASPARTATE AMINOTRANSFERASE INCREASED [None]
  - BILIRUBIN CONJUGATED INCREASED [None]
  - BLOOD ALKALINE PHOSPHATASE INCREASED [None]
  - BLOOD BILIRUBIN INCREASED [None]
  - BLOOD CREATININE INCREASED [None]
  - CONSTIPATION [None]
  - DISEASE PROGRESSION [None]
  - HEPATIC HAEMORRHAGE [None]
  - HEPATOMEGALY [None]
  - HYPERNATRAEMIA [None]
  - HYPERVENTILATION [None]
  - HYPOKALAEMIA [None]
  - LIVER TENDERNESS [None]
  - PANCYTOPENIA [None]
  - TRANSAMINASES INCREASED [None]
